FAERS Safety Report 9775450 (Version 2)
Quarter: 2014Q1

REPORT INFORMATION
  Report Type: Spontaneous
  Country: US (occurrence: US)
  Receive Date: 20131220
  Receipt Date: 20140318
  Transmission Date: 20141002
  Serious: No
  Sender: FDA-Public Use
  Company Number: US-GALDERMA-US13003463

PATIENT
  Age: 29 Year
  Sex: Female
  Weight: 54 kg

DRUGS (10)
  1. MIRVASO (BRIMONIDINE) TOPICAL GEL, 0.33% [Suspect]
     Indication: ROSACEA
     Dosage: 0.33%
     Route: 061
     Dates: start: 20131024, end: 20131028
  2. MIRVASO (BRIMONIDINE) TOPICAL GEL, 0.33% [Suspect]
     Indication: ERYTHEMA
     Route: 061
     Dates: start: 20131028, end: 20131029
  3. MIRVASO (BRIMONIDINE) TOPICAL GEL, 0.33% [Suspect]
     Indication: FLUSHING
     Route: 061
     Dates: start: 20131030, end: 20131030
  4. MIRVASO (BRIMONIDINE) TOPICAL GEL, 0.33% [Suspect]
  5. SKINMEDICA TRI RETINOL ES [Concomitant]
     Indication: ACNE
     Route: 061
  6. SKINMEDICA TRI RETINOL ES [Concomitant]
     Indication: SKIN WRINKLING
  7. VANICREAM LIGHT LOTION [Concomitant]
     Route: 061
  8. COSMETICS [Concomitant]
     Indication: THERAPEUTIC SKIN CARE TOPICAL
     Route: 061
  9. WAL MART MAKEUP REMOVER CLOTHS [Concomitant]
     Indication: THERAPEUTIC SKIN CARE TOPICAL
     Route: 061
  10. TRINESSA [Concomitant]

REACTIONS (9)
  - Condition aggravated [Recovered/Resolved]
  - Flushing [Recovered/Resolved]
  - Feeling hot [Recovered/Resolved]
  - Erythema [Recovered/Resolved]
  - Off label use [Recovered/Resolved]
  - Drug administered at inappropriate site [Recovered/Resolved]
  - Inappropriate schedule of drug administration [Recovered/Resolved]
  - Drug ineffective for unapproved indication [Recovered/Resolved]
  - Drug effect decreased [Recovered/Resolved]
